FAERS Safety Report 5582115-8 (Version None)
Quarter: 2007Q4

REPORT INFORMATION
  Report Type: 
  Country: None (occurrence: None)
  Receive Date: 20071130
  Receipt Date: 20070727
  Transmission Date: 20080405
  Serious: No
  Sender: FDA-Public Use
  Company Number: US200708003085

PATIENT
  Age: 61 Year
  Sex: Male

DRUGS (1)
  1. BYETTA [Suspect]
     Indication: DRUG USE FOR UNKNOWN INDICATION
     Dosage: 5 UG, 2/D
     Dates: start: 20061114, end: 20061128

REACTIONS (2)
  - JOINT SWELLING [None]
  - LIP SWELLING [None]
